FAERS Safety Report 17711294 (Version 1)
Quarter: 2020Q2

REPORT INFORMATION
  Report Type: Spontaneous
  Country: US (occurrence: US)
  Receive Date: 20200427
  Receipt Date: 20200427
  Transmission Date: 20200714
  Serious: Yes (Hospitalization, Other)
  Sender: FDA-Public Use
  Company Number: US-JNJFOC-20200419154

PATIENT
  Age: 49 Year
  Sex: Female

DRUGS (3)
  1. FULVESTRANT. [Suspect]
     Active Substance: FULVESTRANT
     Indication: BREAST CANCER METASTATIC
     Route: 030
     Dates: start: 20190103
  2. PALBOCICLIB [Suspect]
     Active Substance: PALBOCICLIB
     Indication: BREAST CANCER METASTATIC
     Dosage: DAILY FOR 21 DAYS THEN HELD FOR 7 DAYS IN A 28 DAY CYCLE
     Route: 048
     Dates: start: 20190103
  3. ERDAFITINIB. [Suspect]
     Active Substance: ERDAFITINIB
     Indication: BREAST CANCER METASTATIC
     Dosage: C1D1
     Route: 048
     Dates: start: 20190103

REACTIONS (7)
  - Drug-induced liver injury [Recovering/Resolving]
  - Hepatotoxicity [Recovering/Resolving]
  - Fatigue [Recovering/Resolving]
  - Hepatic enzyme increased [Recovering/Resolving]
  - Diarrhoea [Recovering/Resolving]
  - Nausea [Recovering/Resolving]
  - Abdominal pain [Recovering/Resolving]
